FAERS Safety Report 9523909 (Version 2)
Quarter: 2013Q4

REPORT INFORMATION
  Report Type: Spontaneous
  Country: US (occurrence: None)
  Receive Date: 20130912
  Receipt Date: 20131003
  Transmission Date: 20140711
  Serious: Yes (Hospitalization)
  Sender: FDA-Public Use
  Company Number: 2013-002859

PATIENT
  Age: 31 Year
  Sex: Male

DRUGS (1)
  1. ASACOL HD [Suspect]
     Indication: COLITIS ULCERATIVE
     Route: 048
     Dates: start: 2003

REACTIONS (3)
  - Pneumonia viral [None]
  - Epstein-Barr virus infection [None]
  - No reaction on previous exposure to drug [None]
